FAERS Safety Report 23511791 (Version 1)
Quarter: 2024Q1

REPORT INFORMATION
  Report Type: Spontaneous
  Country: IT (occurrence: IT)
  Receive Date: 20240212
  Receipt Date: 20240212
  Transmission Date: 20240410
  Serious: Yes (Other)
  Sender: FDA-Public Use
  Company Number: IT-CURIUM-2024000044

PATIENT
  Age: 40 Year
  Sex: Female

DRUGS (1)
  1. SODIUM IODIDE I 131 [Suspect]
     Active Substance: SODIUM IODIDE I-131
     Indication: Graves^ disease
     Route: 065

REACTIONS (2)
  - Hypothyroidism [Recovered/Resolved]
  - Endocrine ophthalmopathy [Recovering/Resolving]
